FAERS Safety Report 21236065 (Version 1)
Quarter: 2022Q3

REPORT INFORMATION
  Report Type: Spontaneous
  Country: JP (occurrence: JP)
  Receive Date: 20220822
  Receipt Date: 20220822
  Transmission Date: 20221027
  Serious: Yes (Hospitalization, Other)
  Sender: FDA-Public Use
  Company Number: JP-BRISTOL-MYERS SQUIBB COMPANY-2022-090996

PATIENT
  Age: 78 Year
  Sex: Female

DRUGS (2)
  1. IPILIMUMAB [Suspect]
     Active Substance: IPILIMUMAB
     Indication: Non-small cell lung cancer
     Route: 041
  2. OPDIVO [Suspect]
     Active Substance: NIVOLUMAB
     Indication: Non-small cell lung cancer
     Route: 065

REACTIONS (12)
  - Hyperthyroidism [Unknown]
  - Hypothyroidism [Unknown]
  - Decreased appetite [Recovering/Resolving]
  - Weight decreased [Unknown]
  - Hypopituitarism [Unknown]
  - Adrenal disorder [Unknown]
  - Vomiting [Unknown]
  - Hyponatraemia [Unknown]
  - Infection [Recovering/Resolving]
  - Chronic gastritis [Unknown]
  - Performance status decreased [Unknown]
  - Nausea [Unknown]
